FAERS Safety Report 6844334-X (Version None)
Quarter: 2010Q3

REPORT INFORMATION
  Report Type: 
  Country: None (occurrence: None)
  Receive Date: 20100715
  Receipt Date: 20100707
  Transmission Date: 20110219
  Serious: Yes (Other)
  Sender: FDA-Public Use
  Company Number: US-PFIZER INC-2010050709

PATIENT
  Sex: Female
  Weight: 63.5 kg

DRUGS (4)
  1. SUTENT [Suspect]
     Indication: METASTATIC RENAL CELL CARCINOMA
     Dosage: 37.5 MG, DAILY, CYCLE 4/2
     Route: 048
     Dates: start: 20100406, end: 20100426
  2. TOPROL-XL [Concomitant]
  3. FELODIPINE [Concomitant]
  4. XANAX [Concomitant]
     Indication: ANALGESIC THERAPY
     Dosage: AS NEEDED

REACTIONS (4)
  - BLOOD PRESSURE INCREASED [None]
  - GASTROOESOPHAGEAL REFLUX DISEASE [None]
  - PALPITATIONS [None]
  - URINARY TRACT INFECTION [None]
